FAERS Safety Report 4924296-2 (Version None)
Quarter: 2006Q1

REPORT INFORMATION
  Report Type: 
  Country: None (occurrence: None)
  Receive Date: 20060227
  Receipt Date: 20060104
  Transmission Date: 20060701
  Serious: No
  Sender: FDA-Public Use
  Company Number: US-GLAXOSMITHKLINE-A0587768A

PATIENT
  Age: 14 Year
  Sex: Female

DRUGS (2)
  1. WELLBUTRIN XL [Suspect]
     Indication: DEPRESSION
     Dosage: 300MG PER DAY
     Route: 048
     Dates: start: 20051208, end: 20060104
  2. PROZAC [Suspect]
     Indication: DEPRESSION
     Dosage: 20MG PER DAY
     Route: 048
     Dates: start: 20051208

REACTIONS (4)
  - ERYTHEMA [None]
  - RASH PRURITIC [None]
  - SWELLING [None]
  - URTICARIA [None]
